FAERS Safety Report 10156055 (Version 2)
Quarter: 2014Q2

REPORT INFORMATION
  Report Type: Report from Study
  Country: US (occurrence: US)
  Receive Date: 20140506
  Receipt Date: 20140610
  Transmission Date: 20141212
  Serious: Yes (Hospitalization)
  Sender: FDA-Public Use
  Company Number: PHEH2014US008942

PATIENT
  Age: 33 Year
  Sex: Male
  Weight: 77.98 kg

DRUGS (14)
  1. TOBI PODHALER [Suspect]
     Indication: CYSTIC FIBROSIS
     Dosage: 112 MG, BID
     Route: 055
     Dates: start: 201403
  2. TOBI PODHALER [Suspect]
     Indication: PNEUMONIA PSEUDOMONAL
  3. TOBI [Suspect]
     Indication: PNEUMONIA PSEUDOMONAL
     Dosage: 300 MG, BID
     Route: 055
  4. TOBI [Suspect]
     Indication: CYSTIC FIBROSIS
  5. PULMOZYME [Concomitant]
     Dosage: UNK UKN, UNK
  6. CREON [Concomitant]
     Dosage: UNK UKN, UNK
  7. IBUPROFEN [Concomitant]
     Dosage: UNK UKN, UNK
  8. CIPRO [Concomitant]
     Dosage: UNK UKN, UNK
  9. PEPCID [Concomitant]
     Dosage: UNK UKN, UNK
  10. PRILOSEC [Concomitant]
     Dosage: UNK UKN, UNK
  11. SPIRIVA [Concomitant]
     Dosage: UNK UKN, UNK
  12. COMBIVENT [Concomitant]
     Dosage: UNK UKN, UNK
  13. ADVAIR [Concomitant]
     Dosage: UNK UKN, UNK
  14. MULTIVIT//VITAMINS NOS [Concomitant]
     Dosage: UNK UKN, UNK

REACTIONS (3)
  - Condition aggravated [Recovering/Resolving]
  - Cystic fibrosis [Recovering/Resolving]
  - Malaise [Unknown]
